FAERS Safety Report 10779278 (Version 3)
Quarter: 2015Q2

REPORT INFORMATION
  Report Type: Spontaneous
  Country: BR (occurrence: BR)
  Receive Date: 20150210
  Receipt Date: 20150423
  Transmission Date: 20150821
  Serious: Yes (Other)
  Sender: FDA-Public Use
  Company Number: BR-ASTRAZENECA-2015SE11953

PATIENT
  Age: 80 Year
  Sex: Female
  Weight: 78 kg

DRUGS (24)
  1. ATACAND HCT [Suspect]
     Active Substance: CANDESARTAN CILEXETIL\HYDROCHLOROTHIAZIDE
     Indication: BLOOD PRESSURE INCREASED
     Route: 048
     Dates: start: 2006, end: 2008
  2. METFORMIN [Suspect]
     Active Substance: METFORMIN HYDROCHLORIDE
     Indication: BLOOD GLUCOSE INCREASED
     Dosage: NON-AZ PRODUCT, 750 MG IN THE AFTERNOON
     Route: 048
  3. NATRILIX SR [Concomitant]
     Active Substance: INDAPAMIDE
     Indication: CARDIAC DISORDER
     Route: 048
  4. PROCORALAN [Concomitant]
     Active Substance: IVABRADINE
     Indication: BLOOD CHOLESTEROL INCREASED
     Route: 048
  5. ZETIA [Concomitant]
     Active Substance: EZETIMIBE
     Indication: BLOOD CHOLESTEROL INCREASED
     Route: 048
  6. FLUNARIN [Concomitant]
     Indication: NERVOUS SYSTEM DISORDER
     Route: 048
  7. SOMALIUM [Concomitant]
     Indication: SEDATIVE THERAPY
  8. MONOCORDIL [Concomitant]
     Active Substance: ISOSORBIDE MONONITRATE
     Indication: CARDIAC DISORDER
     Route: 048
  9. CORABION HC [Concomitant]
     Indication: SUPPLEMENTATION THERAPY
     Route: 048
  10. ATACAND COMB [Suspect]
     Active Substance: CANDESARTAN CILEXETIL\FELODIPINE
     Indication: BLOOD PRESSURE INCREASED
     Dosage: 16/2.5 MG
     Route: 048
     Dates: start: 2008
  11. ONGLYZA [Suspect]
     Active Substance: SAXAGLIPTIN HYDROCHLORIDE
     Indication: BLOOD GLUCOSE INCREASED
     Route: 048
  12. PROTOS [Concomitant]
     Indication: BONE DISORDER
     Route: 048
  13. ZETIA [Concomitant]
     Active Substance: EZETIMIBE
     Indication: CARDIAC DISORDER
     Route: 048
  14. HYDERGINE [Concomitant]
     Active Substance: ERGOLOID MESYLATES
     Indication: BLOOD CHOLESTEROL INCREASED
     Route: 048
  15. SOMALIUM [Concomitant]
     Indication: SLEEP DISORDER
  16. NATRILIX SR [Concomitant]
     Active Substance: INDAPAMIDE
     Indication: BLOOD CHOLESTEROL INCREASED
     Route: 048
  17. PROCORALAN [Concomitant]
     Active Substance: IVABRADINE
     Indication: CARDIAC DISORDER
     Route: 048
  18. HYDERGINE [Concomitant]
     Active Substance: ERGOLOID MESYLATES
     Indication: CARDIAC DISORDER
     Route: 048
  19. VASTAREL MR [Concomitant]
     Indication: CARDIAC DISORDER
     Route: 048
  20. VASTAREL MR [Concomitant]
     Indication: BLOOD CHOLESTEROL INCREASED
     Route: 048
  21. CRESTOR [Suspect]
     Active Substance: ROSUVASTATIN CALCIUM
     Indication: BLOOD CHOLESTEROL INCREASED
     Route: 048
     Dates: start: 2006
  22. MONOCORDIL [Concomitant]
     Active Substance: ISOSORBIDE MONONITRATE
     Indication: BLOOD CHOLESTEROL INCREASED
     Route: 048
  23. PHARMATON [Concomitant]
     Active Substance: MINERALS\VITAMINS
     Indication: VITAMIN SUPPLEMENTATION
     Route: 048
  24. NEUTROFER FOLICO [Concomitant]
     Indication: VITAMIN SUPPLEMENTATION
     Route: 048

REACTIONS (7)
  - Drug ineffective [Recovered/Resolved]
  - Cardiac disorder [Unknown]
  - Hypoacusis [Unknown]
  - Abdominal discomfort [Recovered/Resolved]
  - Glucose tolerance impaired [Recovered/Resolved]
  - Hypertension [Recovered/Resolved]
  - Nervousness [Recovered/Resolved]

NARRATIVE: CASE EVENT DATE: 2008
